FAERS Safety Report 8622234-2 (Version None)
Quarter: 2012Q3

REPORT INFORMATION
  Report Type: 
  Country: None (occurrence: None)
  Receive Date: 20120827
  Receipt Date: 20120703
  Transmission Date: 20120928
  Serious: Yes (Other)
  Sender: FDA-Public Use
  Company Number: JP-009507513-1208JPN009355

PATIENT

DRUGS (13)
  1. REBETOL [Suspect]
     Indication: HEPATITIS C
     Dosage: 600 MG, QD
     Route: 048
     Dates: start: 20120413, end: 20120606
  2. MOTILIUM [Concomitant]
     Indication: HEPATITIS C
     Dosage: SINGEL USE DURING 10MG/DAY
     Route: 048
     Dates: start: 20120413
  3. LORFENAMIN [Concomitant]
     Dosage: SINGLE USE DURING 1T/DAY
     Route: 048
  4. PEG-INTRON [Suspect]
     Indication: HEPATITIS C
     Dosage: 1.5 MCG /KG/WEEK
     Route: 058
     Dates: start: 20120413, end: 20120425
  5. REBETOL [Suspect]
     Dosage: 400 MG, QD
     Route: 048
     Dates: start: 20120626
  6. TELAVIC [Suspect]
     Indication: HEPATITIS C
     Dosage: 2250 MG, QD
     Route: 048
     Dates: start: 20120413, end: 20120607
  7. PEG-INTRON [Suspect]
     Dosage: 1.0 MCG /KG/WEEK
     Route: 058
     Dates: start: 20120626
  8. PEG-INTRON [Suspect]
     Dosage: 1.0 MCG /KG/WEEK
     Route: 058
     Dates: start: 20120426, end: 20120606
  9. TELAVIC [Suspect]
     Dosage: 1500 MG, QD
     Route: 048
     Dates: start: 20120626, end: 20120724
  10. MOTILIUM [Concomitant]
     Dosage: SINGLE USE DURING 1T/DAY
  11. L CARTIN [Concomitant]
     Dosage: 3 DF, QD
     Route: 048
  12. RIKKUNSHI-TO [Concomitant]
     Dosage: POR THREE DAY OF ..ENCOMPASSING.. / SINGLE USE
     Route: 048
  13. EPADEL [Concomitant]
     Dosage: POR
     Route: 048

REACTIONS (5)
  - RENAL IMPAIRMENT [None]
  - DECREASED APPETITE [None]
  - ANAEMIA [None]
  - PLATELET COUNT DECREASED [None]
  - WHITE BLOOD CELL COUNT DECREASED [None]
